FAERS Safety Report 9928106 (Version 1)
Quarter: 2014Q1

REPORT INFORMATION
  Report Type: Report from Study
  Country: US (occurrence: US)
  Receive Date: 20140227
  Receipt Date: 20140227
  Transmission Date: 20141002
  Serious: Yes (Hospitalization, Other)
  Sender: FDA-Public Use
  Company Number: US-ROCHE-1336267

PATIENT
  Sex: Male

DRUGS (7)
  1. LUCENTIS [Suspect]
     Indication: DIABETIC RETINAL OEDEMA
     Route: 050
     Dates: start: 201011
  2. LUCENTIS [Suspect]
     Indication: DIABETIC RETINOPATHY
     Route: 050
  3. LUCENTIS [Suspect]
     Route: 050
  4. DUREZOL [Concomitant]
     Dosage: OD QID FOR A WEEK THEN BID
     Route: 065
  5. DUREZOL [Concomitant]
     Dosage: QD
     Route: 065
  6. COMBIGAN [Concomitant]
     Dosage: BID OD
     Route: 065
  7. AZOPT [Concomitant]
     Dosage: BID OD
     Route: 065

REACTIONS (16)
  - Angiogram abnormal [Unknown]
  - Medication error [Unknown]
  - Retinal exudates [Unknown]
  - Vitreous adhesions [Unknown]
  - Vitreous floaters [Unknown]
  - Full blood count decreased [Unknown]
  - Eye pain [Unknown]
  - Ocular hypertension [Recovered/Resolved]
  - Visual acuity reduced [Unknown]
  - Retinal vascular disorder [Unknown]
  - Cataract [Unknown]
  - Intraocular lens implant [Unknown]
  - Posterior capsule opacification [Unknown]
  - Cystoid macular oedema [Unknown]
  - Retinal haemorrhage [Unknown]
  - Optic atrophy [Unknown]
